FAERS Safety Report 6879278-0 (Version None)
Quarter: 2010Q3

REPORT INFORMATION
  Report Type: 
  Country: None (occurrence: None)
  Receive Date: 20100728
  Receipt Date: 20100723
  Transmission Date: 20110219
  Serious: Yes (Other)
  Sender: FDA-Public Use
  Company Number: US-ASTRAZENECA-2009UW17568

PATIENT
  Age: 38 Year
  Sex: Female
  Weight: 99.8 kg

DRUGS (10)
  1. SEROQUEL [Suspect]
     Indication: DEPRESSION
     Route: 048
     Dates: start: 20050101
  2. SEROQUEL [Suspect]
     Indication: INSOMNIA
     Route: 048
     Dates: start: 20050101
  3. SEROQUEL [Suspect]
     Route: 048
     Dates: start: 20090619
  4. SEROQUEL [Suspect]
     Route: 048
     Dates: start: 20090619
  5. ZOLOFT [Concomitant]
     Route: 048
     Dates: start: 20090106, end: 20090407
  6. SIMVASTATIN [Concomitant]
     Route: 048
     Dates: start: 20090106, end: 20090407
  7. PRILOSEC [Concomitant]
     Route: 048
     Dates: start: 20090106
  8. GEODON [Concomitant]
     Route: 048
     Dates: start: 20090106
  9. GLIPIZIDE [Concomitant]
     Route: 048
     Dates: start: 20090116, end: 20090407
  10. CLONAZEPAM [Concomitant]
     Route: 048
     Dates: start: 20090106, end: 20090401

REACTIONS (5)
  - BLOOD CHOLESTEROL INCREASED [None]
  - DIABETIC NEUROPATHY [None]
  - HYPERLIPIDAEMIA [None]
  - OBESITY [None]
  - TYPE 2 DIABETES MELLITUS [None]
